FAERS Safety Report 5825297-2 (Version None)
Quarter: 2008Q3

REPORT INFORMATION
  Report Type: 
  Country: None (occurrence: None)
  Receive Date: 20080729
  Receipt Date: 20080404
  Transmission Date: 20090109
  Serious: No
  Sender: FDA-Public Use
  Company Number: US-BAYER-200811519BCC

PATIENT
  Age: 75 Year
  Sex: Female
  Weight: 51 kg

DRUGS (4)
  1. FINACEA [Suspect]
     Indication: ACNE
     Route: 061
     Dates: start: 20080310
  2. FINACEA [Suspect]
     Route: 061
     Dates: start: 20060901
  3. DUONEB [Concomitant]
     Indication: ASTHMA
     Route: 055
  4. SINGULAIR [Concomitant]
     Indication: ASTHMA
     Route: 048

REACTIONS (1)
  - PRURITUS [None]
